FAERS Safety Report 9181575 (Version 1)
Quarter: 2013Q1

REPORT INFORMATION
  Report Type: Spontaneous
  Country: US (occurrence: US)
  Receive Date: 20130322
  Receipt Date: 20130322
  Transmission Date: 20140127
  Serious: Yes (Other)
  Sender: FDA-Public Use
  Company Number: US-JNJFOC-20130309599

PATIENT
  Sex: Female
  Weight: 63.5 kg

DRUGS (3)
  1. TOPIRAMATE [Suspect]
     Indication: WEIGHT INCREASED
     Route: 048
     Dates: end: 2013
  2. TOPIRAMATE [Suspect]
     Indication: WEIGHT INCREASED
     Route: 048
     Dates: start: 2013
  3. LORAZEPAM [Concomitant]
     Indication: ANXIETY
     Route: 065

REACTIONS (2)
  - Muscle twitching [Not Recovered/Not Resolved]
  - Anxiety [Not Recovered/Not Resolved]
